FAERS Safety Report 4388773-8 (Version None)
Quarter: 2004Q2

REPORT INFORMATION
  Report Type: 
  Country: None (occurrence: None)
  Receive Date: 20040624
  Receipt Date: 20040614
  Transmission Date: 20050107
  Serious: Yes (Hospitalization, Other)
  Sender: FDA-Public Use
  Company Number: 2004-06-0038

PATIENT
  Age: 47 Year
  Sex: Male
  Weight: 83 kg

DRUGS (7)
  1. INTRON A [Suspect]
     Indication: MALIGNANT MELANOMA
     Dosage: SEE IMAGE
     Route: 042
     Dates: start: 20030217, end: 20040113
  2. ZYPREXA [Suspect]
     Indication: DEPRESSION
     Dosage: 2.5 - 5 MG ORAL
     Route: 048
     Dates: start: 20030601, end: 20040401
  3. CENTRUM [Concomitant]
  4. CALCIUM/MAGNESIUM [Concomitant]
  5. IMOVANE [Concomitant]
  6. TYLENOL [Concomitant]
  7. NAPROSYN [Concomitant]

REACTIONS (20)
  - ANOREXIA [None]
  - ASPARTATE AMINOTRANSFERASE INCREASED [None]
  - BLOOD LACTATE DEHYDROGENASE INCREASED [None]
  - CEREBRAL ISCHAEMIA [None]
  - CONFUSIONAL STATE [None]
  - DEMYELINATION [None]
  - DEPRESSION [None]
  - FATIGUE [None]
  - GENERALISED ANXIETY DISORDER [None]
  - HAEMOGLOBIN DECREASED [None]
  - INSOMNIA [None]
  - MOVEMENT DISORDER [None]
  - MUSCLE TWITCHING [None]
  - NEUTROPHIL COUNT DECREASED [None]
  - NUCLEAR MAGNETIC RESONANCE IMAGING BRAIN ABNORMAL [None]
  - PAIN [None]
  - PAIN IN EXTREMITY [None]
  - TREMOR [None]
  - WEIGHT DECREASED [None]
  - WHITE BLOOD CELL COUNT DECREASED [None]
